FAERS Safety Report 8500604-0 (Version None)
Quarter: 2012Q3

REPORT INFORMATION
  Report Type: 
  Country: None (occurrence: None)
  Receive Date: 20120710
  Receipt Date: 20120703
  Transmission Date: 20120928
  Serious: Yes (Hospitalization)
  Sender: FDA-Public Use
  Company Number: CA-B.I. PHARMACEUTICALS,INC./RIDGEFIELD-2012-CN-01384CN

PATIENT
  Age: 90 Year
  Sex: Male

DRUGS (11)
  1. SYNTHROID [Concomitant]
  2. ASPIRIN [Concomitant]
  3. DOMPERIDONE [Concomitant]
  4. REPAGLINIDE [Concomitant]
  5. VITAMIN B-12 [Concomitant]
  6. LOPRESSOR [Concomitant]
  7. PANTOPRAZOLE SODIUM [Concomitant]
  8. SODIUM DOCUSATE [Concomitant]
  9. DIGOXIN [Concomitant]
  10. PRADAXA [Suspect]
     Indication: ATRIAL FIBRILLATION
     Dosage: 220 MG
     Route: 048
     Dates: start: 20110901
  11. VITAMIN D [Concomitant]

REACTIONS (1)
  - CEREBROVASCULAR ACCIDENT [None]
